FAERS Safety Report 9591980 (Version 2)
Quarter: 2013Q4

REPORT INFORMATION
  Report Type: Spontaneous
  Country: BE (occurrence: BE)
  Receive Date: 20131004
  Receipt Date: 20131008
  Transmission Date: 20140711
  Serious: Yes (Death)
  Sender: FDA-Public Use
  Company Number: BE-B.I. PHARMACEUTICALS,INC./RIDGEFIELD-2013-BI-31008BL

PATIENT
  Age: 70 Year
  Sex: Male

DRUGS (3)
  1. PRADAXA [Suspect]
     Indication: ATRIAL FIBRILLATION
     Dosage: 300 MG
     Dates: end: 20130930
  2. OMNIC 0.4 [Concomitant]
     Indication: PROSTATIC DISORDER
     Dosage: STRENGTH:0.4
  3. ALPRAZOLAM [Concomitant]
     Indication: ANXIOLYTIC THERAPY

REACTIONS (2)
  - Death [Fatal]
  - Fall [Unknown]
